FAERS Safety Report 6817983-2 (Version None)
Quarter: 2010Q3

REPORT INFORMATION
  Report Type: 
  Country: None (occurrence: None)
  Receive Date: 20100706
  Receipt Date: 20100622
  Transmission Date: 20110219
  Serious: Yes (Other)
  Sender: FDA-Public Use
  Company Number: US-JNJFOC-20100502880

PATIENT
  Sex: Male

DRUGS (4)
  1. CHILDREN'S TYLENOL SUSPENSION [Suspect]
     Indication: INFLUENZA
     Route: 048
  2. CHILDREN'S TYLENOL SUSPENSION [Suspect]
     Indication: OROPHARYNGEAL PAIN
     Route: 048
  3. CHILDREN'S TYLENOL PLUS COUGH [Suspect]
     Indication: INFLUENZA
  4. CHILDREN'S TYLENOL PLUS COUGH [Suspect]
     Indication: OROPHARYNGEAL PAIN

REACTIONS (7)
  - ABASIA [None]
  - DYSPNOEA [None]
  - GENERALISED OEDEMA [None]
  - HYPERSENSITIVITY [None]
  - NASAL CONGESTION [None]
  - OROPHARYNGEAL PAIN [None]
  - PRODUCT QUALITY ISSUE [None]
